FAERS Safety Report 7760924-4 (Version None)
Quarter: 2011Q3

REPORT INFORMATION
  Report Type: 
  Country: None (occurrence: None)
  Receive Date: 20110919
  Receipt Date: 20110411
  Transmission Date: 20111222
  Serious: Yes (Other)
  Sender: FDA-Public Use
  Company Number: PHHY2011BR21516

PATIENT
  Sex: Male

DRUGS (3)
  1. DIOVAN [Suspect]
     Indication: HYPERTENSION
     Dosage: 1 DF, DAILY
  2. ANTIDEPRESSANTS [Concomitant]
     Dosage: UNK
     Dates: end: 20101101
  3. HYGROTON [Suspect]
     Indication: HYPERTENSION

REACTIONS (4)
  - PSEUDOMONAS INFECTION [None]
  - CONVULSION [None]
  - BODY TEMPERATURE INCREASED [None]
  - BLOOD PRESSURE DECREASED [None]
